FAERS Safety Report 9732587 (Version 2)
Quarter: 2013Q4

REPORT INFORMATION
  Report Type: Spontaneous
  Country: GB (occurrence: GB)
  Receive Date: 20131205
  Receipt Date: 20131205
  Transmission Date: 20140711
  Serious: Yes (Other)
  Sender: FDA-Public Use
  Company Number: GB-ELI_LILLY_AND_COMPANY-GB201308009520

PATIENT
  Age: 64 Year
  Sex: Male
  Weight: 83.4 kg

DRUGS (1)
  1. ZYPADHERA [Suspect]
     Indication: SCHIZOPHRENIA
     Dosage: 405 MG, MONTHLY (1/M)
     Route: 030
     Dates: start: 20121203

REACTIONS (10)
  - Dysarthria [Recovered/Resolved]
  - Somnolence [Recovered/Resolved]
  - Confusional state [Recovered/Resolved]
  - Sedation [Recovered/Resolved]
  - Gait disturbance [Recovered/Resolved]
  - Disorientation [Recovered/Resolved]
  - Asthenia [Recovered/Resolved]
  - Muscle fibrosis [Recovered/Resolved]
  - Euphoric mood [Recovered/Resolved]
  - Drug administered at inappropriate site [Unknown]
